FAERS Safety Report 12496711 (Version 1)
Quarter: 2016Q2

REPORT INFORMATION
  Report Type: Not Available
  Country: None (occurrence: US)
  Receive Date: 20160624
  Receipt Date: 20160624
  Transmission Date: 20160815
  Serious: Yes (Hospitalization, Other)
  Sender: FDA-Public Use
  Company Number: US-AKORN-33225

PATIENT
  Sex: Female

DRUGS (1)
  1. METHYLENE BLUE INJECTION, USP [Suspect]
     Active Substance: METHYLENE BLUE

REACTIONS (21)
  - Dyspnoea [Unknown]
  - Serotonin syndrome [Not Recovered/Not Resolved]
  - Areflexia [Unknown]
  - Anxiety [Unknown]
  - Apparent death [Recovered/Resolved with Sequelae]
  - Generalised tonic-clonic seizure [Unknown]
  - Muscle spasticity [Unknown]
  - Muscle rigidity [Unknown]
  - Aphasia [Unknown]
  - Speech disorder [Unknown]
  - Post-traumatic stress disorder [Unknown]
  - Cognitive disorder [Unknown]
  - Pain [Unknown]
  - Mental impairment [Unknown]
  - Bradyphrenia [Unknown]
  - Psychiatric symptom [Unknown]
  - Agitation [Unknown]
  - Pyrexia [Unknown]
  - Confusional state [Unknown]
  - Memory impairment [Unknown]
  - Hallucination [Unknown]

NARRATIVE: CASE EVENT DATE: 20130911
